FAERS Safety Report 10158705 (Version 1)
Quarter: 2014Q2

REPORT INFORMATION
  Report Type: Spontaneous
  Country: US (occurrence: US)
  Receive Date: 20140508
  Receipt Date: 20140508
  Transmission Date: 20141212
  Serious: No
  Sender: FDA-Public Use
  Company Number: US-BIOGENIDEC-2013BI123622

PATIENT
  Age: 52 Year
  Sex: Female

DRUGS (24)
  1. TECFIDERA [Suspect]
     Indication: MULTIPLE SCLEROSIS
     Route: 048
     Dates: start: 201309
  2. AVONEX [Concomitant]
     Indication: MULTIPLE SCLEROSIS
     Route: 030
  3. BACLOFEN [Concomitant]
  4. COMBIVENT [Concomitant]
  5. CYMBALTA [Concomitant]
  6. EMLA [Concomitant]
  7. HEPARIN LOCK FLUSH [Concomitant]
  8. LASIX [Concomitant]
  9. METFORMIN HCL ER [Concomitant]
  10. NASONEX [Concomitant]
  11. NEURONTIN [Concomitant]
  12. OXYBUTYNIN CL ER [Concomitant]
  13. OXYCODONE HCL [Concomitant]
  14. OXYCONTIN [Concomitant]
  15. PROVENTIL HFA [Concomitant]
  16. PROVIL [Concomitant]
  17. REMERON [Concomitant]
  18. RITALIN LA [Concomitant]
  19. SALINE FLUSH [Concomitant]
  20. SIMVASTATIN [Concomitant]
  21. SPIRONOLACTONE [Concomitant]
  22. XANAX [Concomitant]
  23. ZOFRAN [Concomitant]
  24. KLONOPIN [Concomitant]

REACTIONS (2)
  - Depression [Unknown]
  - Nausea [Not Recovered/Not Resolved]
